FAERS Safety Report 19926299 (Version 1)
Quarter: 2021Q4

REPORT INFORMATION
  Report Type: Spontaneous
  Country: CN (occurrence: CN)
  Receive Date: 20211007
  Receipt Date: 20211007
  Transmission Date: 20220303
  Serious: Yes (Other)
  Sender: FDA-Public Use
  Company Number: CN-BAXTER-2021BAX031192

PATIENT
  Age: 19 Year
  Sex: Male
  Weight: 65 kg

DRUGS (15)
  1. CYCLOPHOSPHAMIDE [Suspect]
     Active Substance: CYCLOPHOSPHAMIDE
     Indication: Acute lymphocytic leukaemia
     Dosage: CYCLOPHOSPHAMIDE 500 MG + 0.9% SODIUM CHLORIDE 250 ML
     Route: 041
     Dates: start: 20210909, end: 20210911
  2. CYCLOPHOSPHAMIDE [Suspect]
     Active Substance: CYCLOPHOSPHAMIDE
     Dosage: DOSE REINTRODUCED, CYCLOPHOSPHAMIDE + 0.9% SODIUM CHLORIDE
     Route: 041
  3. DEXTROSE [Suspect]
     Active Substance: DEXTROSE
     Indication: Medication dilution
     Dosage: PIRARUBICIN HYDROCHLORIDE 50 MG + GLUCOSE 500 ML
     Route: 042
     Dates: start: 20210912, end: 20210912
  4. DEXTROSE [Suspect]
     Active Substance: DEXTROSE
     Dosage: DOSE REINTRODUCED
     Route: 042
  5. SODIUM CHLORIDE [Suspect]
     Active Substance: SODIUM CHLORIDE
     Indication: Medication dilution
     Dosage: CYTARABINE 0.05 G + SODIUM CHLORIDE 27 MG
     Route: 037
     Dates: start: 20210908, end: 20210916
  6. SODIUM CHLORIDE [Suspect]
     Active Substance: SODIUM CHLORIDE
     Dosage: CYCLOPHOSPHAMIDE 500 MG + 0.9% SODIUM CHLORIDE 250 ML
     Route: 041
     Dates: start: 20210909, end: 20210911
  7. SODIUM CHLORIDE [Suspect]
     Active Substance: SODIUM CHLORIDE
     Dosage: VINCRISTINE SULFATE 2 MG +  0.9% SODIUM CHLORIDE 50 ML
     Route: 041
     Dates: start: 20210912, end: 20210919
  8. SODIUM CHLORIDE [Suspect]
     Active Substance: SODIUM CHLORIDE
     Dosage: DOSE REINTRODUCED, CYCLOPHOSPHAMIDE, VINCRISTINE SULFATE + 0.9% SODIUM CHLORIDE
     Route: 041
  9. SODIUM CHLORIDE [Suspect]
     Active Substance: SODIUM CHLORIDE
     Dosage: DOSE REINTRODUCED, CYTARABINE + SODIUM CHLORIDE
     Route: 041
  10. CYTARABINE [Suspect]
     Active Substance: CYTARABINE
     Indication: Acute lymphocytic leukaemia
     Dosage: CYTARABINE 0.05 G + SODIUM CHLORIDE 27 MG
     Route: 037
     Dates: start: 20210908, end: 20210916
  11. CYTARABINE [Suspect]
     Active Substance: CYTARABINE
     Dosage: DOSE REINTRODUCED, CYTARABINE + SODIUM CHLORIDE
     Route: 037
  12. PIRARUBICIN HYDROCHLORIDE [Suspect]
     Active Substance: PIRARUBICIN HYDROCHLORIDE
     Indication: Acute lymphocytic leukaemia
     Dosage: PIRARUBICIN HYDROCHLORIDE 50 MG + GLUCOSE 500 ML
     Route: 041
     Dates: start: 20210912, end: 20210912
  13. PIRARUBICIN HYDROCHLORIDE [Suspect]
     Active Substance: PIRARUBICIN HYDROCHLORIDE
     Dosage: DOSE REINTRODUCED
     Route: 041
  14. VINCRISTINE SULFATE [Suspect]
     Active Substance: VINCRISTINE SULFATE
     Indication: Acute lymphocytic leukaemia
     Dosage: VINCRISTINE SULFATE 2 MG +  0.9% SODIUM CHLORIDE 50 ML
     Route: 041
     Dates: start: 20210912, end: 20210912
  15. VINCRISTINE SULFATE [Suspect]
     Active Substance: VINCRISTINE SULFATE
     Dosage: DOSE REINTRODUCED, VINCRISTINE SULFATE  +  0.9% SODIUM CHLORIDE
     Route: 041

REACTIONS (1)
  - Myelosuppression [Recovering/Resolving]

NARRATIVE: CASE EVENT DATE: 20210921
